FAERS Safety Report 5420693-X (Version None)
Quarter: 2007Q3

REPORT INFORMATION
  Report Type: 
  Country: None (occurrence: None)
  Receive Date: 20070816
  Receipt Date: 20070725
  Transmission Date: 20080115
  Serious: Yes (Other)
  Sender: FDA-Public Use
  Company Number: 6036432

PATIENT
  Age: 50 Year
  Sex: Male

DRUGS (5)
  1. SERTRALINE [Suspect]
     Indication: DEPRESSION
     Dosage: (50 MG)
     Route: 048
     Dates: start: 20070502, end: 20070621
  2. AMITRIPTYLINE HCL [Concomitant]
  3. DIAZEPAM [Concomitant]
  4. DICLOFENAC (NARATRIPTAN) [Concomitant]
  5. OMEPRAZOLE [Concomitant]

REACTIONS (3)
  - ALOPECIA [None]
  - PHOTOSENSITIVITY REACTION [None]
  - SUNBURN [None]
